FAERS Safety Report 22170264 (Version 1)
Quarter: 2023Q2

REPORT INFORMATION
  Report Type: Spontaneous
  Country: CA (occurrence: None)
  Receive Date: 20230404
  Receipt Date: 20230404
  Transmission Date: 20230722
  Serious: Yes (Other)
  Sender: FDA-Public Use
  Company Number: CA-ROCHE-3322346

PATIENT
  Sex: Female

DRUGS (15)
  1. RITUXIMAB [Suspect]
     Active Substance: RITUXIMAB
     Indication: Lymphoma transformation
     Route: 065
     Dates: start: 20040501, end: 20040801
  2. RITUXIMAB [Suspect]
     Active Substance: RITUXIMAB
     Route: 065
     Dates: start: 20230105, end: 20230226
  3. RITUXIMAB [Suspect]
     Active Substance: RITUXIMAB
     Route: 065
     Dates: start: 20230316, end: 20230329
  4. CYCLOPHOSPHAMIDE [Suspect]
     Active Substance: CYCLOPHOSPHAMIDE
     Indication: Lymphoma transformation
     Route: 065
     Dates: start: 20030102, end: 20030301
  5. CYCLOPHOSPHAMIDE [Suspect]
     Active Substance: CYCLOPHOSPHAMIDE
     Route: 065
     Dates: start: 20030401, end: 20030708
  6. CYCLOPHOSPHAMIDE [Suspect]
     Active Substance: CYCLOPHOSPHAMIDE
     Route: 065
     Dates: start: 20230105, end: 20230226
  7. DOXORUBICIN HYDROCHLORIDE [Suspect]
     Active Substance: DOXORUBICIN HYDROCHLORIDE
     Indication: Lymphoma transformation
     Route: 065
     Dates: start: 20030401, end: 20030708
  8. ONCOVIN [Suspect]
     Active Substance: VINCRISTINE SULFATE
     Indication: Lymphoma transformation
     Route: 065
     Dates: start: 20030102, end: 20030301
  9. ONCOVIN [Suspect]
     Active Substance: VINCRISTINE SULFATE
     Route: 065
     Dates: start: 20230105, end: 20230226
  10. PREDNISONE [Suspect]
     Active Substance: PREDNISONE
     Indication: Lymphoma transformation
     Route: 065
     Dates: start: 20030102, end: 20030301
  11. PREDNISONE [Suspect]
     Active Substance: PREDNISONE
     Route: 065
     Dates: start: 20230105, end: 20230226
  12. GEMCITABINE [Suspect]
     Active Substance: GEMCITABINE
     Indication: Lymphoma transformation
     Route: 065
     Dates: start: 20230316, end: 20230329
  13. OXALIPLATIN [Suspect]
     Active Substance: OXALIPLATIN
     Indication: Lymphoma transformation
     Route: 065
     Dates: start: 20230316, end: 20230329
  14. PLATINUM [Suspect]
     Active Substance: PLATINUM
     Indication: Lymphoma transformation
     Route: 065
     Dates: start: 20030401, end: 20030708
  15. ETOPOSIDE [Suspect]
     Active Substance: ETOPOSIDE
     Indication: Lymphoma transformation
     Route: 065
     Dates: start: 20230105, end: 20230226

REACTIONS (3)
  - Disease progression [Unknown]
  - Hepatitis B core antibody positive [Unknown]
  - Blood lactate dehydrogenase increased [Unknown]
